FAERS Safety Report 11726059 (Version 2)
Quarter: 2015Q4

REPORT INFORMATION
  Report Type: Spontaneous
  Country: US (occurrence: US)
  Receive Date: 20151112
  Receipt Date: 20151118
  Transmission Date: 20160304
  Serious: Yes (Other)
  Sender: FDA-Public Use
  Company Number: US-ROCHE-1659522

PATIENT
  Age: 81 Year
  Sex: Female
  Weight: 55.84 kg

DRUGS (2)
  1. ACTEMRA [Suspect]
     Active Substance: TOCILIZUMAB
     Indication: RHEUMATOID ARTHRITIS
     Dosage: TOTAL DOSE 240MG
     Route: 042
     Dates: start: 20110705
  2. METHOTREXATE [Concomitant]
     Active Substance: METHOTREXATE

REACTIONS (1)
  - Mucinous breast carcinoma [Unknown]

NARRATIVE: CASE EVENT DATE: 20151013
